FAERS Safety Report 14117497 (Version 2)
Quarter: 2018Q1

REPORT INFORMATION
  Report Type: Spontaneous
  Country: BR (occurrence: BR)
  Receive Date: 20171023
  Receipt Date: 20180108
  Transmission Date: 20180508
  Serious: Yes (Other)
  Sender: FDA-Public Use
  Company Number: BR-AMGEN-BRASP2017159754

PATIENT
  Age: 52 Year
  Sex: Female

DRUGS (2)
  1. ENBREL [Suspect]
     Active Substance: ETANERCEPT
     Dosage: UNK
     Route: 065
  2. ENBREL [Suspect]
     Active Substance: ETANERCEPT
     Indication: RHEUMATIC DISORDER
     Dosage: UNK
     Route: 065
     Dates: start: 201311

REACTIONS (5)
  - Arthralgia [Not Recovered/Not Resolved]
  - Product storage error [Unknown]
  - Poor quality drug administered [Unknown]
  - Intentional product misuse [Unknown]
  - Dengue fever [Unknown]

NARRATIVE: CASE EVENT DATE: 201605
